FAERS Safety Report 8991253 (Version 1)
Quarter: 2012Q4

REPORT INFORMATION
  Report Type: Report from Study
  Country: CA (occurrence: CA)
  Receive Date: 20121231
  Receipt Date: 20121231
  Transmission Date: 20130627
  Serious: Yes (Other)
  Sender: FDA-Public Use
  Company Number: CA-ROCHE-1166829

PATIENT
  Sex: Female

DRUGS (1)
  1. OMALIZUMAB [Suspect]
     Indication: PRODUCT USED FOR UNKNOWN INDICATION
     Route: 065
     Dates: start: 20070530

REACTIONS (10)
  - Diabetes mellitus [Unknown]
  - Hypersensitivity [Unknown]
  - Oedema peripheral [Unknown]
  - Increased bronchial secretion [Unknown]
  - Blood pressure increased [Unknown]
  - Heart rate increased [Unknown]
  - Muscular weakness [Unknown]
  - Sensation of heaviness [Unknown]
  - Sinus congestion [Unknown]
  - Dizziness [Unknown]
